FAERS Safety Report 8552457-2 (Version None)
Quarter: 2012Q3

REPORT INFORMATION
  Report Type: 
  Country: None (occurrence: None)
  Receive Date: 20120719
  Receipt Date: 20120709
  Transmission Date: 20120928
  Serious: Yes (Life-Threatening, Hospitalization)
  Sender: FDA-Public Use
  Company Number: DSA_58278_2012

PATIENT
  Age: 57 Year
  Sex: Male

DRUGS (9)
  1. AMIODARONE HYDROCHLORIDE [Suspect]
     Indication: ATRIAL FIBRILLATION
     Dosage: (DF)
  2. AMIODARONE HYDROCHLORIDE [Suspect]
     Indication: VENTRICULAR FIBRILLATION
     Dosage: (DF)
  3. AMIODARONE HYDROCHLORIDE [Suspect]
     Indication: TORSADE DE POINTES
     Dosage: (DF)
  4. AMIODARONE HYDROCHLORIDE [Suspect]
     Indication: CARDIAC FAILURE
     Dosage: (DF)
  5. FUROSEMIDE [Suspect]
     Indication: PRODUCT USED FOR UNKNOWN INDICATION
     Dosage: (DF)
  6. LORATADINE [Suspect]
     Indication: SEASONAL ALLERGY
     Dosage: (10 MG)
  7. . [Concomitant]
  8. DILTIAZEM HYDROCHLORIDE [Suspect]
     Indication: PRODUCT USED FOR UNKNOWN INDICATION
     Dosage: (DF)
  9. . [Concomitant]

REACTIONS (7)
  - VENTRICULAR EXTRASYSTOLES [None]
  - LONG QT SYNDROME [None]
  - ATRIAL FIBRILLATION [None]
  - TORSADE DE POINTES [None]
  - SYNCOPE [None]
  - CARDIAC FAILURE [None]
  - TACHYCARDIA [None]
